FAERS Safety Report 18475734 (Version 1)
Quarter: 2020Q4

REPORT INFORMATION
  Report Type: Spontaneous
  Country: NL (occurrence: NL)
  Receive Date: 20201106
  Receipt Date: 20201106
  Transmission Date: 20210114
  Serious: Yes (Other)
  Sender: FDA-Public Use
  Company Number: NL-PURDUE-USA-2020-0174561

PATIENT
  Sex: Male

DRUGS (3)
  1. PARACETAMOL [Concomitant]
     Active Substance: ACETAMINOPHEN
     Indication: PRODUCT USED FOR UNKNOWN INDICATION
     Dosage: 1000 MG, BID (2X1000MG)
     Route: 065
     Dates: start: 20200907, end: 20200907
  2. MORFINE [Concomitant]
     Active Substance: MORPHINE
     Dosage: 10 MG, DAILY
     Dates: start: 20200907, end: 20200907
  3. OXYCODONE HYDROCHLORIDE. [Suspect]
     Active Substance: OXYCODONE HYDROCHLORIDE
     Indication: PROCEDURAL PAIN
     Dosage: 5 MG, UNK (EENMALIG 5 MG)
     Route: 065
     Dates: start: 20200907

REACTIONS (1)
  - Respiratory disorder [Recovered/Resolved]
